FAERS Safety Report 5779495-7 (Version None)
Quarter: 2008Q2

REPORT INFORMATION
  Report Type: 
  Country: None (occurrence: None)
  Receive Date: 20080619
  Receipt Date: 20070430
  Transmission Date: 20081010
  Serious: No
  Sender: FDA-Public Use
  Company Number: US-ASTRAZENECA-2007UW08850

PATIENT
  Sex: Female

DRUGS (4)
  1. ATACAND [Suspect]
     Route: 048
  2. PULMICORT TH [Concomitant]
  3. RANITIDINE [Concomitant]
  4. BUSPAR-GENERIC [Concomitant]

REACTIONS (4)
  - ABDOMINAL DISTENSION [None]
  - DYSPNOEA [None]
  - FLUID RETENTION [None]
  - INCREASED UPPER AIRWAY SECRETION [None]
